FAERS Safety Report 9175474 (Version 2)
Quarter: 2013Q1

REPORT INFORMATION
  Report Type: Spontaneous
  Country: US (occurrence: US)
  Receive Date: 20130320
  Receipt Date: 20130326
  Transmission Date: 20140127
  Serious: No
  Sender: FDA-Public Use
  Company Number: US-ROCHE-1203510

PATIENT
  Age: 60 Year
  Sex: Female

DRUGS (1)
  1. TAMIFLU [Suspect]
     Indication: ANTIVIRAL PROPHYLAXIS
     Route: 048
     Dates: start: 20130315

REACTIONS (13)
  - Feeling abnormal [Recovering/Resolving]
  - Paraesthesia [Recovering/Resolving]
  - Urine odour abnormal [Recovering/Resolving]
  - Chromaturia [Recovering/Resolving]
  - Lip dry [Recovering/Resolving]
  - Tremor [Recovering/Resolving]
  - Product quality issue [Unknown]
  - Malaise [Recovering/Resolving]
  - Chapped lips [Recovering/Resolving]
  - Faeces pale [Recovering/Resolving]
  - Myalgia [Not Recovered/Not Resolved]
  - Pruritus [Not Recovered/Not Resolved]
  - Skin reaction [Not Recovered/Not Resolved]
